FAERS Safety Report 8619194-7 (Version None)
Quarter: 2012Q3

REPORT INFORMATION
  Report Type: 
  Country: None (occurrence: None)
  Receive Date: 20120824
  Receipt Date: 20120816
  Transmission Date: 20120928
  Serious: Yes (Death, Hospitalization)
  Sender: FDA-Public Use
  Company Number: DE-CELGENEUS-062-50794-12040188

PATIENT
  Age: 80 Year
  Sex: Male
  Weight: 75 kg

DRUGS (17)
  1. VIDAZA [Suspect]
     Dosage: 145 MILLIGRAM
     Route: 058
     Dates: start: 20120220, end: 20120224
  2. VIDAZA [Suspect]
     Dosage: 145 MILLIGRAM
     Route: 058
     Dates: start: 20120326, end: 20120327
  3. ESIDRIX [Concomitant]
     Dosage: 12.5 MILLIGRAM
     Route: 065
  4. FLUTRIMAZOLE [Concomitant]
     Dosage: 400 MILLIGRAM
     Route: 065
  5. RAMIPRIL [Concomitant]
     Dosage: 5 MILLIGRAM
     Route: 065
  6. LORAZEPAM [Concomitant]
     Dosage: 1 MILLIGRAM
     Route: 065
  7. XYLOCAINE [Concomitant]
     Indication: BRONCHOSCOPY
     Route: 065
     Dates: start: 20120409, end: 20120409
  8. PREDNISOLONE [Concomitant]
     Dosage: 5 MILLIGRAM
     Route: 065
  9. PANTOPRAZOLE [Concomitant]
     Dosage: 20 MILLIGRAM
     Route: 065
  10. POLYETHYLENE GLYCOL [Concomitant]
     Dosage: 400 MILLIGRAM
     Route: 065
  11. SODIUM CHLORIDE [Concomitant]
     Indication: BRONCHOSCOPY
     Route: 065
     Dates: start: 20120409, end: 20120409
  12. VIDAZA [Suspect]
     Dosage: 145 MILLIGRAM
     Route: 058
     Dates: start: 20120227, end: 20120228
  13. ONDANSETRON [Concomitant]
     Route: 048
     Dates: start: 20120220, end: 20120220
  14. CARVEDILOL [Concomitant]
     Dosage: 12.5 MILLIGRAM
     Route: 065
  15. VIDAZA [Suspect]
     Dosage: 145 MILLIGRAM
     Route: 058
     Dates: start: 20120319, end: 20120323
  16. ONDANSETRON [Concomitant]
     Route: 048
     Dates: start: 20120319, end: 20120319
  17. TORSEMIDE [Concomitant]
     Dosage: 10 MILLIGRAM
     Route: 065

REACTIONS (6)
  - PULMONARY OEDEMA [None]
  - SEPSIS [None]
  - PANCYTOPENIA [None]
  - CARDIAC FAILURE [None]
  - ABSCESS SWEAT GLAND [None]
  - PNEUMONIA [None]
